FAERS Safety Report 8462652-9 (Version None)
Quarter: 2012Q2

REPORT INFORMATION
  Report Type: 
  Country: None (occurrence: None)
  Receive Date: 20120625
  Receipt Date: 20120613
  Transmission Date: 20120825
  Serious: Yes (Other)
  Sender: FDA-Public Use
  Company Number: JP-VERTEX PHARMACEUTICALS INC.-AE-2012-008974

PATIENT
  Age: 69 Year
  Sex: Male

DRUGS (12)
  1. REBETOL [Concomitant]
     Indication: HEPATITIS C
     Route: 048
     Dates: start: 20120302, end: 20120308
  2. REBETOL [Concomitant]
     Route: 048
     Dates: start: 20120519
  3. PEG-INTRON [Concomitant]
     Indication: HEPATITIS C
     Route: 058
     Dates: start: 20120302, end: 20120302
  4. REBETOL [Concomitant]
     Route: 048
     Dates: start: 20120407, end: 20120518
  5. TELAVIC (TELAPREVIR) [Suspect]
     Route: 048
     Dates: end: 20120510
  6. REBETOL [Concomitant]
     Route: 048
     Dates: start: 20120324, end: 20120406
  7. REBETOL [Concomitant]
     Route: 048
     Dates: start: 20120309, end: 20120323
  8. PEG-INTRON [Concomitant]
     Route: 058
     Dates: start: 20120309
  9. TELAVIC (TELAPREVIR) [Suspect]
     Indication: HEPATITIS C
     Route: 048
     Dates: start: 20120302, end: 20120323
  10. TELAVIC (TELAPREVIR) [Suspect]
     Route: 048
     Dates: start: 20120511, end: 20120601
  11. TELAVIC (TELAPREVIR) [Suspect]
     Route: 048
     Dates: start: 20120324
  12. PEG-INTRON [Concomitant]
     Route: 058

REACTIONS (1)
  - NEUTROPHIL COUNT DECREASED [None]
